FAERS Safety Report 25427325 (Version 1)
Quarter: 2025Q2

REPORT INFORMATION
  Report Type: Spontaneous
  Country: CN (occurrence: CN)
  Receive Date: 20250612
  Receipt Date: 20250612
  Transmission Date: 20250717
  Serious: Yes (Other)
  Sender: BAXTER
  Company Number: None

PATIENT
  Age: 42 Year
  Sex: Female
  Weight: 58 kg

DRUGS (4)
  1. CYCLOPHOSPHAMIDE [Suspect]
     Active Substance: CYCLOPHOSPHAMIDE
     Indication: Breast cancer female
     Dosage: 0.9G,QD, ROA: INJECTION IN PUMP
     Route: 065
     Dates: start: 20250527, end: 20250527
  2. SODIUM CHLORIDE [Suspect]
     Active Substance: SODIUM CHLORIDE
     Dosage: 250 ML NS(NORMAL SALINE) + EPIRUBICIN HYDROCHLORIDE FOR INJECTION
     Route: 041
     Dates: start: 20250527, end: 20250527
  3. SODIUM CHLORIDE [Suspect]
     Active Substance: SODIUM CHLORIDE
     Dosage: 50 ML NS + CYCLOPHOSPHAMIDE FOR INJECTION (ENDOXAN)
     Route: 065
     Dates: start: 20250527, end: 20250527
  4. EPIRUBICIN HYDROCHLORIDE [Suspect]
     Active Substance: EPIRUBICIN HYDROCHLORIDE
     Indication: Breast cancer female
     Dosage: 130.000000 MG, QD
     Route: 041
     Dates: start: 20250527, end: 20250527

REACTIONS (3)
  - Vomiting [Recovering/Resolving]
  - Nausea [Recovering/Resolving]
  - Decreased appetite [Unknown]

NARRATIVE: CASE EVENT DATE: 20250527
